FAERS Safety Report 17508316 (Version 1)
Quarter: 2020Q1

REPORT INFORMATION
  Report Type: Spontaneous
  Country: US (occurrence: US)
  Receive Date: 20200305
  Receipt Date: 20200305
  Transmission Date: 20200409
  Serious: Yes (Hospitalization)
  Sender: FDA-Public Use
  Company Number: None

PATIENT
  Sex: Female

DRUGS (12)
  1. DOXAZOSIN [Concomitant]
     Active Substance: DOXAZOSIN MESYLATE
  2. IVERMECTIN. [Concomitant]
     Active Substance: IVERMECTIN
  3. OZURDEX [Suspect]
     Active Substance: DEXAMETHASONE
     Indication: TYPE 2 DIABETES MELLITUS
     Dosage: ?          OTHER FREQUENCY:Q3M;OTHER ROUTE:INTRAVITREALLY?
     Dates: start: 20191127
  4. ATORVASTATIN [Concomitant]
     Active Substance: ATORVASTATIN
  5. TELMISARTAN. [Concomitant]
     Active Substance: TELMISARTAN
  6. TIMOLOL. [Concomitant]
     Active Substance: TIMOLOL
  7. VIRT-CAPS [Concomitant]
     Active Substance: ASCORBIC ACID\BIOTIN\CALCIUM PANTOTHENATE\CYANOCOBALAMIN\FOLIC ACID\NIACINAMIDE\PYRIDOXINE HYDROCHLORIDE\RIBOFLAVIN\THIAMINE MONONITRATE
  8. VITAMIN D [Concomitant]
     Active Substance: VITAMIN D NOS
  9. AMLODIPINE [Concomitant]
     Active Substance: AMLODIPINE BESYLATE
  10. FOLIC ACID. [Concomitant]
     Active Substance: FOLIC ACID
  11. FUROSEMIDE. [Concomitant]
     Active Substance: FUROSEMIDE
  12. METOPROLOL TARTRATE. [Concomitant]
     Active Substance: METOPROLOL TARTRATE

REACTIONS (1)
  - Renal transplant [None]
